FAERS Safety Report 25592866 (Version 2)
Quarter: 2025Q3

REPORT INFORMATION
  Report Type: Spontaneous
  Country: US (occurrence: US)
  Receive Date: 20250722
  Receipt Date: 20250827
  Transmission Date: 20251020
  Serious: No
  Sender: SANOFI AVENTIS
  Company Number: US-SA-2025SA209251

PATIENT
  Age: 62 Year
  Sex: Female

DRUGS (4)
  1. DUPIXENT [Suspect]
     Active Substance: DUPILUMAB
     Indication: Eczema
     Route: 058
     Dates: start: 20250611, end: 20250611
  2. DUPIXENT [Suspect]
     Active Substance: DUPILUMAB
     Dosage: 300 MG, QOW
     Route: 058
     Dates: start: 202506
  3. CITALOPRAM [Suspect]
     Active Substance: CITALOPRAM
  4. ARIPIPRAZOLE [Suspect]
     Active Substance: ARIPIPRAZOLE

REACTIONS (9)
  - Eyelid margin crusting [Recovering/Resolving]
  - Ocular hyperaemia [Recovering/Resolving]
  - Eye pruritus [Recovering/Resolving]
  - Dry eye [Recovering/Resolving]
  - Injection site bruising [Recovered/Resolved]
  - Injection site mass [Recovering/Resolving]
  - Rash [Recovering/Resolving]
  - Scab [Unknown]
  - Pruritus [Unknown]

NARRATIVE: CASE EVENT DATE: 20250101
